FAERS Safety Report 8974430 (Version 1)
Quarter: 2012Q4

REPORT INFORMATION
  Report Type: Spontaneous
  Country: IT (occurrence: None)
  Receive Date: 20121214
  Receipt Date: 20121214
  Transmission Date: 20130627
  Serious: Yes (Life-Threatening, Hospitalization, Other)
  Sender: FDA-Public Use
  Company Number: 2012P1066367

PATIENT
  Age: 29 Year
  Sex: Male

DRUGS (3)
  1. ADENOSINE [Suspect]
     Indication: SUPRAVENTRICULAR TACHYCARDIA
     Route: 042
  2. ADENOSINE [Suspect]
     Indication: SUPRAVENTRICULAR TACHYCARDIA
     Route: 042
  3. ADENOSINE [Suspect]
     Indication: SUPRAVENTRICULAR TACHYCARDIA
     Route: 042

REACTIONS (8)
  - Drug ineffective [None]
  - Bronchospasm [None]
  - Respiratory failure [None]
  - Supraventricular tachycardia [None]
  - Microcytic anaemia [None]
  - Troponin I increased [None]
  - Supraventricular tachycardia [None]
  - Bundle branch block left [None]
